FAERS Safety Report 22018480 (Version 1)
Quarter: 2023Q1

REPORT INFORMATION
  Report Type: Spontaneous
  Country: ES (occurrence: ES)
  Receive Date: 20230222
  Receipt Date: 20230222
  Transmission Date: 20230418
  Serious: Yes (Other)
  Sender: FDA-Public Use
  Company Number: ES-SLATE RUN PHARMACEUTICALS-23ES001508

PATIENT

DRUGS (8)
  1. DESVENLAFAXINE SUCCINATE [Suspect]
     Active Substance: DESVENLAFAXINE SUCCINATE
     Indication: Antidepressant therapy
     Dosage: 150 MILLIGRAM, QD
     Dates: end: 202011
  2. DESVENLAFAXINE SUCCINATE [Suspect]
     Active Substance: DESVENLAFAXINE SUCCINATE
     Dosage: 50 MILLIGRAM, QD
     Dates: start: 202101
  3. VORTIOXETINE [Suspect]
     Active Substance: VORTIOXETINE
     Indication: Antidepressant therapy
     Dosage: 20 MILLIGRAM, QD
     Dates: end: 202011
  4. VORTIOXETINE [Suspect]
     Active Substance: VORTIOXETINE
     Dosage: 10 MILLIGRAM, QD
     Dates: start: 202101
  5. ROSUVASTATIN [Concomitant]
     Active Substance: ROSUVASTATIN
     Indication: Dyslipidaemia
  6. AMLODIPINE [Concomitant]
     Active Substance: AMLODIPINE BESYLATE
     Indication: Hypertension
  7. ENALAPRIL [Concomitant]
     Active Substance: ENALAPRIL
     Indication: Hypertension
  8. LEVOTHYROXINE [Concomitant]
     Active Substance: LEVOTHYROXINE
     Indication: Hypothyroidism

REACTIONS (5)
  - Phaeochromocytoma [Unknown]
  - Blood catecholamines increased [Recovered/Resolved]
  - Catecholamines urine increased [Recovered/Resolved]
  - Drug interaction [Unknown]
  - Off label use [Unknown]

NARRATIVE: CASE EVENT DATE: 20200101
